FAERS Safety Report 8073490-3 (Version None)
Quarter: 2012Q1

REPORT INFORMATION
  Report Type: 
  Country: None (occurrence: None)
  Receive Date: 20120126
  Receipt Date: 20120126
  Transmission Date: 20120608
  Serious: Yes (Hospitalization, Other)
  Sender: FDA-Public Use
  Company Number: None

PATIENT
  Age: 35 Year
  Sex: Female
  Weight: 66.224 kg

DRUGS (1)
  1. ULTRAM [Suspect]

REACTIONS (3)
  - CONVULSION [None]
  - AMNESIA [None]
  - BLOOD POTASSIUM DECREASED [None]
